FAERS Safety Report 10640493 (Version 3)
Quarter: 2017Q1

REPORT INFORMATION
  Report Type: Spontaneous
  Country: FR (occurrence: FR)
  Receive Date: 20141209
  Receipt Date: 20170123
  Transmission Date: 20170428
  Serious: Yes (Hospitalization, Other)
  Sender: FDA-Public Use
  Company Number: FR-JNJFOC-20141202623

PATIENT
  Age: 33 Year
  Sex: Female

DRUGS (2)
  1. CIRRUS [Suspect]
     Active Substance: CETIRIZINE HYDROCHLORIDE\PSEUDOEPHEDRINE HYDROCHLORIDE
     Route: 065
  2. CIRRUS [Suspect]
     Active Substance: CETIRIZINE HYDROCHLORIDE\PSEUDOEPHEDRINE HYDROCHLORIDE
     Indication: SUICIDE ATTEMPT
     Dosage: 5 DF, ONE TIME DOSE
     Route: 065
     Dates: start: 201411, end: 201411

REACTIONS (3)
  - Toxicity to various agents [Recovered/Resolved]
  - Somnolence [Recovered/Resolved]
  - Suicide attempt [Recovered/Resolved]

NARRATIVE: CASE EVENT DATE: 201411
